FAERS Safety Report 4284230-8 (Version None)
Quarter: 2004Q1

REPORT INFORMATION
  Report Type: 
  Country: None (occurrence: None)
  Receive Date: 20040203
  Receipt Date: 20030624
  Transmission Date: 20041129
  Serious: Yes (Hospitalization)
  Sender: FDA-Public Use
  Company Number: FR-ROCHE-340703

PATIENT
  Age: 39 Year
  Sex: Female

DRUGS (7)
  1. DACLIZUMAB [Suspect]
     Route: 042
     Dates: start: 20020628, end: 20020628
  2. MYCOPHENOLATE MOFETIL [Suspect]
     Route: 048
     Dates: start: 20020615, end: 20020713
  3. MYCOPHENOLATE MOFETIL [Suspect]
     Route: 048
     Dates: start: 20020811
  4. NEORAL [Suspect]
     Route: 048
     Dates: start: 20020615
  5. STEROIDS [Suspect]
     Route: 048
     Dates: start: 20020615
  6. STEROIDS [Suspect]
     Route: 048
     Dates: start: 20020629
  7. STEROIDS [Suspect]
     Route: 048
     Dates: end: 20021219

REACTIONS (3)
  - CYTOMEGALOVIRUS INFECTION [None]
  - PYREXIA [None]
  - VIRAL HAEMORRHAGIC CYSTITIS [None]
